FAERS Safety Report 5597876-1 (Version None)
Quarter: 2007Q4

REPORT INFORMATION
  Report Type: 
  Country: None (occurrence: None)
  Receive Date: 20071221
  Receipt Date: 20070522
  Transmission Date: 20080405
  Serious: Yes (Other)
  Sender: FDA-Public Use
  Company Number: US200705005578

PATIENT
  Sex: Male

DRUGS (3)
  1. HUMALOG PEN [Suspect]
     Indication: DIABETES MELLITUS
  2. GLUCAGON [Suspect]
     Indication: HYPOGLYCAEMIA
     Dates: start: 20070519, end: 20070519
  3. LANTUS [Concomitant]

REACTIONS (3)
  - DRUG INEFFECTIVE [None]
  - HYPOGLYCAEMIA [None]
  - WRONG DRUG ADMINISTERED [None]
